FAERS Safety Report 13253924 (Version 1)
Quarter: 2017Q1

REPORT INFORMATION
  Report Type: Report from Study
  Country: NL (occurrence: NL)
  Receive Date: 20170220
  Receipt Date: 20170220
  Transmission Date: 20170428
  Serious: Yes (Other)
  Sender: FDA-Public Use
  Company Number: NL-MYLANLABS-2017M1009561

PATIENT

DRUGS (1)
  1. ASCORBIC ACID. [Suspect]
     Active Substance: ASCORBIC ACID
     Indication: HEREDITARY MOTOR AND SENSORY NEUROPATHY
     Dosage: FOUR CAPSULES OF 250MG EACH, TWICE DAILY
     Route: 048

REACTIONS (1)
  - Rash [Recovered/Resolved]
